FAERS Safety Report 25824052 (Version 1)
Quarter: 2025Q3

REPORT INFORMATION
  Report Type: Spontaneous
  Country: US (occurrence: US)
  Receive Date: 20250919
  Receipt Date: 20250919
  Transmission Date: 20251021
  Serious: No
  Sender: ROCHE
  Company Number: US-ROCHE-10000389061

PATIENT
  Sex: Male

DRUGS (1)
  1. HEMLIBRA [Suspect]
     Active Substance: EMICIZUMAB-KXWH
     Indication: Factor VIII deficiency
     Dosage: STRENGTH: 60MG/0.4ML.
     Route: 058
     Dates: start: 201207

REACTIONS (5)
  - Haemorrhage [Recovering/Resolving]
  - Limb injury [Unknown]
  - Peripheral swelling [Unknown]
  - Contusion [Unknown]
  - Pain [Unknown]
